FAERS Safety Report 20196359 (Version 1)
Quarter: 2021Q4

REPORT INFORMATION
  Report Type: Spontaneous
  Country: US (occurrence: US)
  Receive Date: 20211216
  Receipt Date: 20211216
  Transmission Date: 20220303
  Serious: No
  Sender: FDA-Public Use
  Company Number: US-ENDO PHARMACEUTICALS INC-2021-012180

PATIENT
  Age: 45 Year
  Sex: Male
  Weight: 58.957 kg

DRUGS (1)
  1. XIAFLEX [Suspect]
     Active Substance: COLLAGENASE CLOSTRIDIUM HISTOLYTICUM
     Indication: Peyronie^s disease
     Dosage: UNK, UNKNOWN (CYCLE ONE, INJECTION ONE)
     Route: 065
     Dates: start: 20211004

REACTIONS (3)
  - Swelling [Not Recovered/Not Resolved]
  - Genital contusion [Not Recovered/Not Resolved]
  - Injection site bruising [Not Recovered/Not Resolved]

NARRATIVE: CASE EVENT DATE: 20211001
